FAERS Safety Report 8599348-9 (Version None)
Quarter: 2012Q3

REPORT INFORMATION
  Report Type: 
  Country: None (occurrence: None)
  Receive Date: 20120816
  Receipt Date: 20120814
  Transmission Date: 20120928
  Serious: Yes (Death)
  Sender: FDA-Public Use
  Company Number: SE-ROCHE-1102471

PATIENT

DRUGS (4)
  1. LEUCOVORIN CALCIUM [Suspect]
     Indication: COLON CANCER
     Dosage: DATE OF LAST DOSE: 14/JUN/2012
     Dates: start: 20120520, end: 20120614
  2. IRINOTECAN HYDROCHLORIDE [Suspect]
     Indication: COLON CANCER
     Dosage: DATE OF LAST DOSE: 14/JUN/2012
     Dates: start: 20120520, end: 20120614
  3. FLUOROURACIL [Suspect]
     Indication: COLON CANCER
     Dosage: DATE OF LAST DOSE: 14/JUN/2012
     Dates: start: 20120520, end: 20120614
  4. AVASTIN [Suspect]
     Indication: COLON CANCER
     Dosage: DATE OF LAST DOSE: 14/JUN/2012
     Dates: start: 20120520, end: 20120614

REACTIONS (2)
  - JAUNDICE [None]
  - TOXICITY TO VARIOUS AGENTS [None]
